FAERS Safety Report 11012308 (Version 1)
Quarter: 2015Q2

REPORT INFORMATION
  Report Type: Spontaneous
  Country: US (occurrence: None)
  Receive Date: 20150410
  Receipt Date: 20150410
  Transmission Date: 20150821
  Serious: No
  Sender: FDA-Public Use
  Company Number: None

PATIENT
  Age: 81 Year
  Sex: Female

DRUGS (8)
  1. LISINOPRIL. [Concomitant]
     Active Substance: LISINOPRIL
  2. TYROTHRICIN [Concomitant]
     Active Substance: TYROTHRICIN
  3. PREDNISOLONE. [Concomitant]
     Active Substance: PREDNISOLONE
  4. REVLIMID [Suspect]
     Active Substance: LENALIDOMIDE
     Indication: MYELODYSPLASTIC SYNDROME
     Route: 048
     Dates: start: 20141029, end: 20150323
  5. POLYETHYLENE GLYCOL [Concomitant]
     Active Substance: POLYETHYLENE GLYCOLS
  6. DOCUSATE [Concomitant]
     Active Substance: DOCUSATE
  7. PLAVIX [Concomitant]
     Active Substance: CLOPIDOGREL BISULFATE
  8. METRONIDAZOLE. [Concomitant]
     Active Substance: METRONIDAZOLE

REACTIONS (4)
  - Oedema peripheral [None]
  - Cytopenia [None]
  - Condition aggravated [None]
  - Rash [None]

NARRATIVE: CASE EVENT DATE: 20150323
